FAERS Safety Report 14292446 (Version 2)
Quarter: 2019Q1

REPORT INFORMATION
  Report Type: Report from Study
  Country: JP (occurrence: JP)
  Receive Date: 20171215
  Receipt Date: 20190311
  Transmission Date: 20190417
  Serious: Yes (Death, Other)
  Sender: FDA-Public Use
  Company Number: JP-VIFOR (INTERNATIONAL) INC.-VIT-2017-02915

PATIENT
  Age: 68 Year
  Sex: Male
  Weight: 53.2 kg

DRUGS (20)
  1. PLAVIX [Concomitant]
     Active Substance: CLOPIDOGREL BISULFATE
     Route: 048
  2. EPOETIN ALFA BS [Concomitant]
     Active Substance: ERYTHROPOIETIN
     Dates: start: 20170622, end: 20170704
  3. REMITCH [Concomitant]
     Active Substance: NALFURAFINE HYDROCHLORIDE
     Route: 048
  4. REGPARA [Concomitant]
     Active Substance: CINACALCET HYDROCHLORIDE
     Route: 048
  5. WARFARIN POTASSIUM [Concomitant]
     Active Substance: WARFARIN POTASSIUM
     Route: 048
     Dates: end: 20170417
  6. WARFARIN POTASSIUM [Concomitant]
     Active Substance: WARFARIN POTASSIUM
     Route: 048
     Dates: start: 20170417
  7. EPOETIN ALFA BS [Concomitant]
     Active Substance: ERYTHROPOIETIN
     Dates: start: 20170112, end: 20170307
  8. VELPHORO [Suspect]
     Active Substance: FERRIC OXYHYDROXIDE
     Indication: HYPERPHOSPHATAEMIA
     Route: 048
     Dates: start: 20161115, end: 20161215
  9. EPOETIN ALFA BS [Concomitant]
     Active Substance: ERYTHROPOIETIN
     Dates: end: 20161221
  10. EPOETIN ALFA BS [Concomitant]
     Active Substance: ERYTHROPOIETIN
     Dates: start: 20161222, end: 20170111
  11. EPOETIN ALFA BS [Concomitant]
     Active Substance: ERYTHROPOIETIN
     Dates: start: 20170308, end: 20170404
  12. VELPHORO [Suspect]
     Active Substance: FERRIC OXYHYDROXIDE
     Route: 048
     Dates: start: 20161216, end: 20170907
  13. CALTAN [Concomitant]
     Active Substance: CALCIUM CARBONATE
     Indication: HYPERPHOSPHATAEMIA
     Route: 048
     Dates: end: 20161215
  14. CEFDITOREN PIVOXIL. [Concomitant]
     Active Substance: CEFDITOREN PIVOXIL
     Indication: PROPHYLAXIS
     Route: 048
     Dates: start: 20161129, end: 20161201
  15. EPOETIN ALFA BS [Concomitant]
     Active Substance: ERYTHROPOIETIN
     Dates: start: 20170405, end: 20170523
  16. ALFACALCIDOL [Concomitant]
     Active Substance: ALFACALCIDOL
     Route: 048
     Dates: end: 20170718
  17. ALFACALCIDOL [Concomitant]
     Active Substance: ALFACALCIDOL
     Route: 048
     Dates: start: 20170719, end: 20170907
  18. AMIODARONE HYDROCHLORIDE. [Concomitant]
     Active Substance: AMIODARONE HYDROCHLORIDE
     Route: 048
     Dates: end: 20170307
  19. CEFDITOREN PIVOXIL. [Concomitant]
     Active Substance: CEFDITOREN PIVOXIL
     Indication: TOOTH EXTRACTION
  20. CARVEDILOL. [Concomitant]
     Active Substance: CARVEDILOL
     Route: 048
     Dates: start: 20170815, end: 20170907

REACTIONS (6)
  - Upper respiratory tract inflammation [Recovered/Resolved]
  - Haemoglobin increased [Not Recovered/Not Resolved]
  - Cerebral haemorrhage [Fatal]
  - Upper respiratory tract inflammation [Recovered/Resolved]
  - Upper respiratory tract inflammation [Recovered/Resolved]
  - Gastritis [Recovered/Resolved]

NARRATIVE: CASE EVENT DATE: 20161214
